FAERS Safety Report 6207475-6 (Version None)
Quarter: 2009Q2

REPORT INFORMATION
  Report Type: 
  Country: None (occurrence: None)
  Receive Date: 20090528
  Receipt Date: 20090525
  Transmission Date: 20091009
  Serious: Yes (Hospitalization, Other)
  Sender: FDA-Public Use
  Company Number: DK-PFIZER INC-2009218165

PATIENT
  Age: 47 Year

DRUGS (5)
  1. ZARATOR [Suspect]
     Indication: HYPERCHOLESTEROLAEMIA
     Dosage: FREQUENCY: 1X/DAY, DAILY;
     Dates: start: 20080101, end: 20090101
  2. ZARATOR [Suspect]
     Dosage: FREQUENCY: DAILY;
     Dates: start: 19970101, end: 20080101
  3. APROVEL [Concomitant]
  4. MONTELUKAST [Concomitant]
     Indication: HYPERSENSITIVITY
  5. LANSOPRAZOL [Concomitant]

REACTIONS (1)
  - MYELITIS TRANSVERSE [None]
